FAERS Safety Report 8558069-9 (Version None)
Quarter: 2012Q3

REPORT INFORMATION
  Report Type: 
  Country: None (occurrence: None)
  Receive Date: 20120801
  Receipt Date: 20120723
  Transmission Date: 20120928
  Serious: Yes (Hospitalization)
  Sender: FDA-Public Use
  Company Number: BR-ASTRAZENECA-2012SE27198

PATIENT
  Age: 76 Year
  Sex: Female
  Weight: 65 kg

DRUGS (10)
  1. OMEPRAZOLE [Suspect]
     Indication: PROPHYLAXIS
     Route: 048
  2. CALCIUM [Concomitant]
     Indication: OSTEOPENIA
     Route: 048
  3. RIVOTRIL [Concomitant]
     Indication: INSOMNIA
     Dosage: AS REQUIRED
     Route: 048
     Dates: start: 20110401
  4. SINERGEN [Concomitant]
     Indication: HYPERTENSION
     Route: 048
  5. CRESTOR [Suspect]
     Dosage: HALF TABLET DAILY
     Route: 048
  6. COUMADIN [Concomitant]
     Route: 048
     Dates: start: 20110401
  7. SYNTHROID [Concomitant]
     Route: 048
  8. BISOPROLOL FUMARATE [Concomitant]
     Route: 048
     Dates: start: 20110401
  9. UNSPECIFIED [Concomitant]
     Indication: OSTEOARTHRITIS
     Route: 048
  10. CRESTOR [Suspect]
     Route: 048
     Dates: start: 20120401

REACTIONS (2)
  - PERIPHERAL EMBOLISM [None]
  - INTENTIONAL DRUG MISUSE [None]
